FAERS Safety Report 4380630-6 (Version None)
Quarter: 2004Q2

REPORT INFORMATION
  Report Type: 
  Country: None (occurrence: None)
  Receive Date: 20040618
  Receipt Date: 20040609
  Transmission Date: 20050107
  Serious: Yes (Other)
  Sender: FDA-Public Use
  Company Number: PHBS2004AR07776

PATIENT
  Sex: Female

DRUGS (2)
  1. ZELMAC [Suspect]
     Indication: CONSTIPATION
     Dosage: 6 MG, ONCE/SINGLE
     Route: 048
     Dates: start: 20040524
  2. ANTIHYPERTENSIVES [Concomitant]
     Indication: HYPERTENSION

REACTIONS (1)
  - HAEMATOCHEZIA [None]
